FAERS Safety Report 15061183 (Version 1)
Quarter: 2018Q2

REPORT INFORMATION
  Report Type: Spontaneous
  Country: US (occurrence: US)
  Receive Date: 20180625
  Receipt Date: 20180625
  Transmission Date: 20180711
  Serious: No
  Sender: FDA-Public Use
  Company Number: US-ROCHE-1936205

PATIENT
  Age: 64 Year
  Sex: Female
  Weight: 55.84 kg

DRUGS (1)
  1. XELODA [Suspect]
     Active Substance: CAPECITABINE
     Indication: BREAST CANCER METASTATIC
     Route: 065
     Dates: start: 201704, end: 201710

REACTIONS (14)
  - Pain [Unknown]
  - Yellow skin [Unknown]
  - Skin ulcer [Unknown]
  - Palmar-plantar erythrodysaesthesia syndrome [Unknown]
  - Drug ineffective [Unknown]
  - Peripheral swelling [Unknown]
  - Skin hypertrophy [Unknown]
  - Memory impairment [Unknown]
  - Sensory loss [Unknown]
  - Skin exfoliation [Unknown]
  - Skin disorder [Unknown]
  - Nail discolouration [Unknown]
  - Dry skin [Unknown]
  - Skin discolouration [Unknown]

NARRATIVE: CASE EVENT DATE: 20170501
